FAERS Safety Report 9095267 (Version 1)
Quarter: 2013Q1

REPORT INFORMATION
  Report Type: Spontaneous
  Country: DE (occurrence: DE)
  Receive Date: 20130219
  Receipt Date: 20130219
  Transmission Date: 20140127
  Serious: Yes (Hospitalization)
  Sender: FDA-Public Use
  Company Number: DE-009507513-1302DEU006457

PATIENT
  Age: 2 Year
  Sex: 0

DRUGS (1)
  1. JANUMET [Suspect]
     Dosage: 50MG/1000MG, ONCE
     Route: 048
     Dates: start: 20130213, end: 20130213

REACTIONS (1)
  - Accidental exposure to product by child [Unknown]
